FAERS Safety Report 5073932-1 (Version None)
Quarter: 2006Q3

REPORT INFORMATION
  Report Type: 
  Country: None (occurrence: None)
  Receive Date: 20060808
  Receipt Date: 20060728
  Transmission Date: 20061208
  Serious: Yes (Other)
  Sender: FDA-Public Use
  Company Number: US-JNJFOC-20060800291

PATIENT
  Sex: Female
  Weight: 52.16 kg

DRUGS (7)
  1. TOPAMAX [Suspect]
     Dosage: AT NIGHT
     Route: 048
  2. TOPAMAX [Suspect]
     Dosage: AT NIGHT
     Route: 048
  3. TOPAMAX [Suspect]
     Indication: PSYCHIATRIC SYMPTOM
     Dosage: GRADUALLY INCREASED
     Route: 048
  4. GEODON [Suspect]
     Indication: DRUG USE FOR UNKNOWN INDICATION
  5. LEVLITE [Concomitant]
  6. CONCERTA [Concomitant]
  7. ZOLOFT [Concomitant]

REACTIONS (4)
  - BREAST ATROPHY [None]
  - HYPERSOMNIA [None]
  - LOSS OF CONSCIOUSNESS [None]
  - METRORRHAGIA [None]
